FAERS Safety Report 9857933 (Version 1)
Quarter: 2014Q1

REPORT INFORMATION
  Report Type: Spontaneous
  Country: US (occurrence: US)
  Receive Date: 20140131
  Receipt Date: 20140131
  Transmission Date: 20141002
  Serious: Yes (Hospitalization, Other)
  Sender: FDA-Public Use
  Company Number: US-ACCORD-021529

PATIENT
  Age: 47 Year
  Sex: Female
  Weight: 110 kg

DRUGS (1)
  1. AMLODIPINE [Suspect]
     Dosage: NORMALLY TOOK AMLODIPINE 5 MG BY MOUTH ONCE DAILY
     Route: 048

REACTIONS (7)
  - Feeling hot [Unknown]
  - Overdose [Unknown]
  - Muscle contractions involuntary [Unknown]
  - Hypotension [Recovered/Resolved]
  - Shock [Recovered/Resolved]
  - Tachycardia [Recovered/Resolved]
  - Metabolic acidosis [Recovered/Resolved]
